FAERS Safety Report 19832222 (Version 2)
Quarter: 2021Q4

REPORT INFORMATION
  Report Type: Report from Study
  Country: US (occurrence: US)
  Receive Date: 20210915
  Receipt Date: 20211018
  Transmission Date: 20220303
  Serious: No
  Sender: FDA-Public Use
  Company Number: US-BIOVITRUM-2021US3945

PATIENT
  Sex: Female

DRUGS (1)
  1. KINERET [Suspect]
     Active Substance: ANAKINRA
     Indication: Product used for unknown indication
     Route: 058
     Dates: start: 20200303

REACTIONS (7)
  - Memory impairment [Unknown]
  - Corneal abrasion [Unknown]
  - Fall [Unknown]
  - Neck injury [Unknown]
  - Influenza like illness [Unknown]
  - Product dose omission issue [Unknown]
  - Product dose omission in error [Unknown]
